FAERS Safety Report 24134167 (Version 1)
Quarter: 2024Q3

REPORT INFORMATION
  Report Type: Spontaneous
  Country: PL (occurrence: PL)
  Receive Date: 20240724
  Receipt Date: 20240724
  Transmission Date: 20241017
  Serious: Yes (Hospitalization)
  Sender: Haleon PLC
  Company Number: PL-HALEON-2185791

PATIENT
  Age: 96 Year
  Sex: Female
  Weight: 45 kg

DRUGS (2)
  1. DICLOFENAC [Suspect]
     Active Substance: DICLOFENAC
     Indication: Spinal osteoarthritis
     Route: 048
     Dates: start: 20201026, end: 20201030
  2. ASPIRIN [Suspect]
     Active Substance: ASPIRIN
     Indication: Atrial fibrillation
     Route: 048
     Dates: end: 20201030

REACTIONS (3)
  - Duodenal ulcer [Recovered/Resolved]
  - Gastric ulcer [Recovered/Resolved]
  - Haematemesis [Recovered/Resolved]

NARRATIVE: CASE EVENT DATE: 20201030
